FAERS Safety Report 10360171 (Version 1)
Quarter: 2014Q3

REPORT INFORMATION
  Report Type: Spontaneous
  Country: US (occurrence: None)
  Receive Date: 20140801
  Receipt Date: 20140801
  Transmission Date: 20150326
  Serious: Yes (Hospitalization)
  Sender: FDA-Public Use
  Company Number: None

PATIENT
  Age: 31 Year
  Sex: Female
  Weight: 57.6 kg

DRUGS (16)
  1. ACYCLOVIR. [Concomitant]
     Active Substance: ACYCLOVIR
  2. ALBUTEROL INHALER [Concomitant]
     Active Substance: ALBUTEROL
  3. HYDROMORPHONE [Concomitant]
     Active Substance: HYDROMORPHONE
  4. METOCLOPRAMIDE HC1 [Concomitant]
  5. MORPHINE SULFATE EXTENDED-RELEASE [Concomitant]
     Active Substance: MORPHINE SULFATE
  6. MEDROXYPROGESTERONE [Concomitant]
     Active Substance: MEDROXYPROGESTERONE
  7. ONDANSETRON ODT [Concomitant]
     Active Substance: ONDANSETRON
  8. CHLORHEXIDINE (PERIDEX) [Concomitant]
  9. CALCIUM ACETATE. [Concomitant]
     Active Substance: CALCIUM ACETATE
  10. MORPHINE SULFATE EXTENDED-RELEASE [Concomitant]
     Active Substance: MORPHINE SULFATE
  11. NEXAVAR [Suspect]
     Active Substance: SORAFENIB
     Indication: ACUTE MYELOID LEUKAEMIA
     Dosage: 2 PILLS, BID, ORAL
     Route: 048
     Dates: start: 20140716
  12. LORAZEPAM. [Concomitant]
     Active Substance: LORAZEPAM
  13. MARINOL [Concomitant]
     Active Substance: DRONABINOL
  14. GABAPENTIN (NEURONTIN) [Concomitant]
  15. BACLOFEN. [Concomitant]
     Active Substance: BACLOFEN
  16. MAGNESIUM OXIDE. [Concomitant]
     Active Substance: MAGNESIUM OXIDE

REACTIONS (3)
  - Leukaemic infiltration extramedullary [None]
  - Pulmonary hilum mass [None]
  - Localised infection [None]

NARRATIVE: CASE EVENT DATE: 20140730
